FAERS Safety Report 17216834 (Version 1)
Quarter: 2019Q4

REPORT INFORMATION
  Report Type: Spontaneous
  Country: JP (occurrence: JP)
  Receive Date: 20191231
  Receipt Date: 20191231
  Transmission Date: 20200122
  Serious: Yes (Other)
  Sender: FDA-Public Use
  Company Number: JP-SHIRE-JP201944638

PATIENT

DRUGS (3)
  1. BIOFERMIN [LACTOMIN] [Concomitant]
     Indication: PRODUCT USED FOR UNKNOWN INDICATION
  2. LIALDA [Suspect]
     Active Substance: MESALAMINE
     Indication: COLITIS ULCERATIVE
     Dosage: 4800 MILLIGRAM, 1X/DAY:QD
     Route: 048
     Dates: start: 20180209, end: 20180314
  3. FERROSTEC [Concomitant]
     Active Substance: SODIUM FERROUS CITRATE
     Indication: PRODUCT USED FOR UNKNOWN INDICATION

REACTIONS (3)
  - Pancreatitis [Recovering/Resolving]
  - Diarrhoea [Recovering/Resolving]
  - Haematochezia [Recovering/Resolving]

NARRATIVE: CASE EVENT DATE: 20180308
